FAERS Safety Report 6170034-8 (Version None)
Quarter: 2009Q2

REPORT INFORMATION
  Report Type: 
  Country: None (occurrence: None)
  Receive Date: 20090428
  Receipt Date: 20090421
  Transmission Date: 20091009
  Serious: Yes (Hospitalization)
  Sender: FDA-Public Use
  Company Number: BR-ASTRAZENECA-2009UW10097

PATIENT
  Age: 63 Year
  Sex: Male

DRUGS (5)
  1. CRESTOR [Suspect]
     Route: 048
     Dates: start: 20080601
  2. CAPTOPRIL [Concomitant]
     Indication: HYPERTENSION
  3. CALCIUM [Concomitant]
  4. VITAMINS [Concomitant]
  5. CLOPIDOGREL [Concomitant]
     Dates: start: 20080601, end: 20080701

REACTIONS (1)
  - RENAL FAILURE [None]
